FAERS Safety Report 5098376-8 (Version None)
Quarter: 2006Q3

REPORT INFORMATION
  Report Type: 
  Country: None (occurrence: None)
  Receive Date: 20060906
  Receipt Date: 20060828
  Transmission Date: 20061208
  Serious: Yes (Other)
  Sender: FDA-Public Use
  Company Number: JP-MERCK-0608USA07076

PATIENT
  Age: 78 Year
  Sex: Female

DRUGS (4)
  1. ZOCOR [Suspect]
     Route: 048
     Dates: start: 20060820, end: 20060820
  2. AMARYL [Concomitant]
     Route: 048
  3. AMLODIN [Concomitant]
     Route: 048
  4. NEUROVITAN [Concomitant]
     Route: 048

REACTIONS (2)
  - HYPERHIDROSIS [None]
  - VOMITING [None]
